FAERS Safety Report 17506468 (Version 1)
Quarter: 2020Q1

REPORT INFORMATION
  Report Type: Spontaneous
  Country: US (occurrence: US)
  Receive Date: 20200305
  Receipt Date: 20200305
  Transmission Date: 20200409
  Serious: No
  Sender: FDA-Public Use
  Company Number: US-ROCHE-2433358

PATIENT
  Age: 36 Year
  Sex: Female
  Weight: 86.26 kg

DRUGS (2)
  1. PREDNISONE. [Concomitant]
     Active Substance: PREDNISONE
  2. XOLAIR [Suspect]
     Active Substance: OMALIZUMAB
     Indication: ASTHMA
     Route: 058
     Dates: start: 20190601

REACTIONS (2)
  - Weight increased [Unknown]
  - Food craving [Not Recovered/Not Resolved]

NARRATIVE: CASE EVENT DATE: 201906
